FAERS Safety Report 4500595-3 (Version None)
Quarter: 2004Q4

REPORT INFORMATION
  Report Type: 
  Country: None (occurrence: None)
  Receive Date: 20041115
  Receipt Date: 20041019
  Transmission Date: 20050328
  Serious: Yes (Hospitalization)
  Sender: FDA-Public Use
  Company Number: DE-ABBOTT-04P-062-0278150-00

PATIENT
  Sex: Male
  Weight: 83 kg

DRUGS (1)
  1. AKINETON [Suspect]
     Indication: DRUG USE FOR UNKNOWN INDICATION
     Route: 048
     Dates: start: 20041018, end: 20041018

REACTIONS (3)
  - HYPERTENSION [None]
  - MYDRIASIS [None]
  - OVERDOSE [None]
